FAERS Safety Report 13687855 (Version 1)
Quarter: 2017Q2

REPORT INFORMATION
  Report Type: Report from Study
  Country: GB (occurrence: GB)
  Receive Date: 20170626
  Receipt Date: 20170626
  Transmission Date: 20170830
  Serious: Yes (Other)
  Sender: FDA-Public Use
  Company Number: GB-AMGEN-GBRSL2017093115

PATIENT
  Age: 53 Year
  Sex: Female

DRUGS (1)
  1. ARANESP [Suspect]
     Active Substance: DARBEPOETIN ALFA
     Indication: PRODUCT USED FOR UNKNOWN INDICATION
     Dosage: 60 MUG, UNK
     Route: 065

REACTIONS (9)
  - Liver transplant [Unknown]
  - Renal transplant [Unknown]
  - Ear haemorrhage [Unknown]
  - Sleep apnoea syndrome [Not Recovered/Not Resolved]
  - Epistaxis [Unknown]
  - Condition aggravated [Not Recovered/Not Resolved]
  - Intracranial aneurysm [Unknown]
  - Epilepsy [Not Recovered/Not Resolved]
  - Transfusion [Unknown]

NARRATIVE: CASE EVENT DATE: 2016
